FAERS Safety Report 24866635 (Version 1)
Quarter: 2025Q1

REPORT INFORMATION
  Report Type: Spontaneous
  Country: US (occurrence: US)
  Receive Date: 20250121
  Receipt Date: 20250121
  Transmission Date: 20250409
  Serious: No
  Sender: CURRAX PHARMACEUTICALS
  Company Number: US-CURRAX PHARMACEUTICALS LLC-US-2023CUR001183

PATIENT
  Age: 49 Year
  Sex: Male

DRUGS (2)
  1. CONTRAVE [Suspect]
     Active Substance: BUPROPION HYDROCHLORIDE\NALTREXONE HYDROCHLORIDE
     Indication: Weight control
     Dosage: STRENGTH 8/90 MG, ONE TABLET DAILY
     Route: 048
     Dates: start: 20230315, end: 20230320
  2. LISINOPRIL [Concomitant]
     Active Substance: LISINOPRIL
     Indication: Product used for unknown indication

REACTIONS (8)
  - Anger [Unknown]
  - Paraesthesia [Unknown]
  - Aggression [Unknown]
  - Agitation [Unknown]
  - Mood swings [Unknown]
  - Disturbance in attention [Unknown]
  - Presyncope [Unknown]
  - Anxiety [Unknown]

NARRATIVE: CASE EVENT DATE: 20230301
